FAERS Safety Report 13150524 (Version 1)
Quarter: 2017Q1

REPORT INFORMATION
  Report Type: Report from Study
  Country: US (occurrence: US)
  Receive Date: 20170124
  Receipt Date: 20170124
  Transmission Date: 20170428
  Serious: No
  Sender: FDA-Public Use
  Company Number: US-AMGEN-USASL2016172414

PATIENT
  Age: 81 Year
  Sex: Female
  Weight: 69.84 kg

DRUGS (3)
  1. FLUVASTATIN [Concomitant]
     Active Substance: FLUVASTATIN SODIUM
     Indication: HYPERLIPIDAEMIA
     Dosage: 10 MG, QD
     Dates: start: 20150121
  2. REPATHA [Suspect]
     Active Substance: EVOLOCUMAB
     Indication: HYPERLIPIDAEMIA
     Dosage: 140 MG, Q2WK
     Route: 058
     Dates: start: 20151209
  3. REPATHA [Suspect]
     Active Substance: EVOLOCUMAB
     Indication: BLOOD CHOLESTEROL INCREASED

REACTIONS (2)
  - Drug dose omission [Unknown]
  - Incorrect product storage [Recovering/Resolving]

NARRATIVE: CASE EVENT DATE: 20161129
